FAERS Safety Report 6404339-X (Version None)
Quarter: 2009Q4

REPORT INFORMATION
  Report Type: 
  Country: None (occurrence: None)
  Receive Date: 20091016
  Receipt Date: 20090918
  Transmission Date: 20100525
  Serious: No
  Sender: FDA-Public Use
  Company Number: US-BAYER-200914745BCC

PATIENT
  Age: 75 Year
  Sex: Male
  Weight: 78 kg

DRUGS (7)
  1. ALEVE (CAPLET) [Suspect]
     Indication: ARTHRITIS
     Dosage: TOTAL DAILY DOSE: 880 MG  UNIT DOSE: 220 MG
     Route: 048
  2. OMEGA 3 OIL [Concomitant]
  3. VITAMIN D [Concomitant]
  4. IRON SUPPLEMENT [Concomitant]
  5. POTASSIUM CHLORIDE [Concomitant]
  6. PETHENCOL [Concomitant]
  7. ATENOLOL [Concomitant]

REACTIONS (1)
  - NAUSEA [None]
